FAERS Safety Report 24892714 (Version 2)
Quarter: 2025Q2

REPORT INFORMATION
  Report Type: Report from Study
  Country: US (occurrence: US)
  Receive Date: 20250128
  Receipt Date: 20250409
  Transmission Date: 20250716
  Serious: Yes (Other)
  Sender: ABBVIE
  Company Number: US-ABBVIE-6101762

PATIENT
  Age: 65 Year
  Sex: Female
  Weight: 44.452 kg

DRUGS (2)
  1. CREON [Suspect]
     Active Substance: PANCRELIPASE AMYLASE\PANCRELIPASE LIPASE\PANCRELIPASE PROTEASE
     Indication: Pancreatic failure
     Route: 048
  2. CREON [Suspect]
     Active Substance: PANCRELIPASE AMYLASE\PANCRELIPASE LIPASE\PANCRELIPASE PROTEASE
     Indication: Pancreatic failure
     Route: 048
     Dates: start: 20240828

REACTIONS (8)
  - Cholecystectomy [Unknown]
  - Weight increased [Recovered/Resolved]
  - Cataract [Recovering/Resolving]
  - Malnutrition [Recovering/Resolving]
  - Pain [Recovered/Resolved]
  - Hepatobiliary scan abnormal [Unknown]
  - Megacolon [Unknown]
  - Irritability [Recovered/Resolved]

NARRATIVE: CASE EVENT DATE: 20240905
